FAERS Safety Report 8198932-4 (Version None)
Quarter: 2012Q1

REPORT INFORMATION
  Report Type: 
  Country: None (occurrence: None)
  Receive Date: 20120309
  Receipt Date: 20120227
  Transmission Date: 20120608
  Serious: No
  Sender: FDA-Public Use
  Company Number: US-AMGEN-USASP2012005100

PATIENT
  Age: 67 Year
  Sex: Female

DRUGS (6)
  1. PROLIA [Suspect]
     Indication: OSTEOPOROSIS POSTMENOPAUSAL
     Dosage: 60 MG, Q6MO
     Dates: start: 20111206
  2. CALCIUM MAGNESIUM [Concomitant]
  3. LIQUID CALCIUM WITH MAGNESSIUM [Concomitant]
  4. COLITIS MEDICATION [Concomitant]
  5. VITAMIN D [Concomitant]
  6. ASPIRIN [Concomitant]

REACTIONS (10)
  - FACIAL PAIN [None]
  - ORAL PAIN [None]
  - PAIN IN JAW [None]
  - TOOTHACHE [None]
  - MUSCLE SPASMS [None]
  - TRISMUS [None]
  - HYPOAESTHESIA [None]
  - MASTICATION DISORDER [None]
  - PAIN IN EXTREMITY [None]
  - GAIT DISTURBANCE [None]
